FAERS Safety Report 9008556 (Version 1)
Quarter: 2013Q1

REPORT INFORMATION
  Report Type: Spontaneous
  Country: US (occurrence: US)
  Receive Date: 20130111
  Receipt Date: 20130111
  Transmission Date: 20140127
  Serious: No
  Sender: FDA-Public Use
  Company Number: US-PFIZER INC-2013012960

PATIENT
  Age: 60 Year
  Sex: Male
  Weight: 78.01 kg

DRUGS (8)
  1. CHANTIX [Suspect]
     Indication: SMOKING CESSATION THERAPY
     Dosage: 0.5 MG, DAILY
     Dates: start: 20130106
  2. FENTORA [Concomitant]
     Indication: BREAKTHROUGH PAIN
     Dosage: 400 UG, AS NEEDED
  3. OPANA ER [Concomitant]
     Dosage: 30 MG, 2X/DAY
  4. DIAZEPAM [Concomitant]
     Indication: MUSCLE SPASMS
     Dosage: 10 MG, AS NEEDED
  5. PROMETHAZINE [Concomitant]
     Indication: NAUSEA
     Dosage: 25 MG, AS NEEDED
  6. RELPAX [Concomitant]
     Indication: MIGRAINE
     Dosage: 40 MG, AS NEEDED
  7. LYRICA [Concomitant]
     Indication: NEURALGIA
     Dosage: 75 MG, 2X/DAY
     Dates: start: 20130104
  8. TAMSULOSIN [Concomitant]
     Dosage: 0.4 MG, DAILY
     Dates: start: 201301

REACTIONS (1)
  - Abnormal dreams [Unknown]
